FAERS Safety Report 6102692-8 (Version None)
Quarter: 2009Q1

REPORT INFORMATION
  Report Type: 
  Country: None (occurrence: None)
  Receive Date: 20090304
  Receipt Date: 20070709
  Transmission Date: 20090719
  Serious: Yes (Other)
  Sender: FDA-Public Use
  Company Number: B0424019A

PATIENT
  Age: 66 Year
  Sex: Male

DRUGS (4)
  1. REQUIP [Suspect]
     Indication: PARKINSON'S DISEASE
     Dosage: 5MG SEE DOSAGE TEXT
     Route: 048
     Dates: start: 20020521
  2. SINEMET CR [Concomitant]
     Dosage: 6TAB PER DAY
     Route: 048
  3. SELEGILINE [Concomitant]
     Dosage: 5MG TWICE PER DAY
     Route: 048
  4. MADOPAR [Concomitant]
     Dosage: 62.5U IN THE MORNING
     Route: 048

REACTIONS (1)
  - SUDDEN ONSET OF SLEEP [None]
